FAERS Safety Report 4868047-9 (Version None)
Quarter: 2005Q4

REPORT INFORMATION
  Report Type: 
  Country: None (occurrence: None)
  Receive Date: 20051229
  Receipt Date: 20051219
  Transmission Date: 20060501
  Serious: Yes (Hospitalization)
  Sender: FDA-Public Use
  Company Number: AU-ROCHE-429033

PATIENT
  Age: 11 Year
  Sex: Male

DRUGS (2)
  1. MYCOPHENOLATE MOFETIL [Suspect]
     Indication: DRUG USE FOR UNKNOWN INDICATION
     Dosage: DAILY.
     Route: 065
  2. CYCLOSPORINE [Suspect]
     Dosage: DAILY.
     Route: 065

REACTIONS (11)
  - BLOOD CREATINE INCREASED [None]
  - HUMAN POLYOMAVIRUS INFECTION [None]
  - HYPOTENSION [None]
  - KIDNEY FIBROSIS [None]
  - KIDNEY TRANSPLANT REJECTION [None]
  - LYMPHADENOPATHY [None]
  - NEPHROPATHY TOXIC [None]
  - PYREXIA [None]
  - RENAL CELL CARCINOMA STAGE IV [None]
  - RENAL TUBULAR ATROPHY [None]
  - WEIGHT DECREASED [None]
